FAERS Safety Report 9144402 (Version 2)
Quarter: 2013Q2

REPORT INFORMATION
  Report Type: Spontaneous
  Country: TW (occurrence: TW)
  Receive Date: 20130306
  Receipt Date: 20130415
  Transmission Date: 20140414
  Serious: Yes (Other)
  Sender: FDA-Public Use
  Company Number: TW-ROCHE-1196009

PATIENT
  Sex: Female

DRUGS (3)
  1. RECORMON [Suspect]
     Indication: NEPHROGENIC ANAEMIA
     Route: 058
     Dates: start: 200711, end: 200912
  2. RECORMON [Suspect]
     Route: 058
     Dates: start: 200912, end: 201212
  3. MIRCERA [Suspect]
     Indication: NEPHROGENIC ANAEMIA
     Route: 042
     Dates: start: 201003, end: 201209

REACTIONS (1)
  - Aplasia pure red cell [Not Recovered/Not Resolved]
